FAERS Safety Report 12489089 (Version 1)
Quarter: 2016Q2

REPORT INFORMATION
  Report Type: Spontaneous
  Country: GB (occurrence: GB)
  Receive Date: 20160622
  Receipt Date: 20160622
  Transmission Date: 20160815
  Serious: Yes (Hospitalization)
  Sender: FDA-Public Use
  Company Number: GB-TEVA-668567ACC

PATIENT
  Age: 83 Year
  Sex: Female
  Weight: 60 kg

DRUGS (3)
  1. DIGOXIN. [Concomitant]
     Active Substance: DIGOXIN
     Dosage: 125 MICROGRAM DAILY; AFTER ORAL LOADING
  2. VERAPAMIL [Suspect]
     Active Substance: VERAPAMIL HYDROCHLORIDE
     Indication: ATRIAL FIBRILLATION
     Dosage: STAT DOSE.
     Route: 048
     Dates: start: 20160526, end: 20160526
  3. BISOPROLOL [Concomitant]
     Active Substance: BISOPROLOL

REACTIONS (5)
  - Dyspnoea [Unknown]
  - Atrioventricular block complete [Recovered/Resolved]
  - Hypotension [Unknown]
  - Acute kidney injury [Recovering/Resolving]
  - Hepatic ischaemia [Recovering/Resolving]

NARRATIVE: CASE EVENT DATE: 20160526
